FAERS Safety Report 9848550 (Version 1)
Quarter: 2014Q1

REPORT INFORMATION
  Report Type: Spontaneous
  Country: US (occurrence: None)
  Receive Date: 20140124
  Receipt Date: 20140124
  Transmission Date: 20141002
  Serious: Yes (Other)
  Sender: FDA-Public Use
  Company Number: None

PATIENT
  Age: 39 Year
  Sex: Female
  Weight: 72.7 kg

DRUGS (1)
  1. PACLITAXEL [Suspect]
     Indication: BREAST CANCER
     Route: 042
     Dates: start: 20131219

REACTIONS (6)
  - Blood pressure decreased [None]
  - Heart rate increased [None]
  - Malaise [None]
  - Erythema [None]
  - Musculoskeletal stiffness [None]
  - Eye movement disorder [None]
